FAERS Safety Report 4899647-8 (Version None)
Quarter: 2006Q1

REPORT INFORMATION
  Report Type: 
  Country: None (occurrence: None)
  Receive Date: 20060118
  Receipt Date: 20050922
  Transmission Date: 20060701
  Serious: No
  Sender: FDA-Public Use
  Company Number: 2005001865

PATIENT
  Age: 57 Year
  Sex: Male
  Weight: 109.3169 kg

DRUGS (9)
  1. TARCEVA [Suspect]
     Indication: NON-SMALL CELL LUNG CANCER
     Dosage: 150 MG (QD), ORAL
     Route: 048
     Dates: start: 20050712
  2. CARDIZEM [Concomitant]
  3. LORADINE [Concomitant]
  4. COMBIVENT [Concomitant]
  5. SINGULAIR [Concomitant]
  6. ADVAIR DISKUS 100/50 [Concomitant]
  7. PLAVIX [Concomitant]
  8. ADVIL [Concomitant]
  9. CLINDAMYCIN [Concomitant]

REACTIONS (2)
  - ONYCHOMADESIS [None]
  - RASH [None]
